FAERS Safety Report 12386316 (Version 4)
Quarter: 2016Q3

REPORT INFORMATION
  Report Type: Report from Study
  Country: AR (occurrence: AR)
  Receive Date: 20160519
  Receipt Date: 20160816
  Transmission Date: 20161109
  Serious: Yes (Disabling)
  Sender: FDA-Public Use
  Company Number: AR-INCYTE CORPORATION-2016IN002747

PATIENT
  Age: 76 Year
  Sex: Female

DRUGS (2)
  1. JAKAFI [Suspect]
     Active Substance: RUXOLITINIB
     Dosage: 1.25 DF (1 DF OF 15 MG AND 0.25 DF OF 20 MG), UNK
     Route: 065
     Dates: start: 201606
  2. JAKAFI [Suspect]
     Active Substance: RUXOLITINIB
     Indication: PRIMARY MYELOFIBROSIS
     Dosage: 20 MG, QD
     Route: 065
     Dates: start: 20150301

REACTIONS (7)
  - Obesity [Unknown]
  - Wrong technique in product usage process [Unknown]
  - Anaemia [Recovering/Resolving]
  - Metatarsalgia [Recovered/Resolved]
  - Weight increased [Unknown]
  - Weight fluctuation [Recovering/Resolving]
  - Arthralgia [Not Recovered/Not Resolved]

NARRATIVE: CASE EVENT DATE: 201512
